FAERS Safety Report 8900372 (Version 1)
Quarter: 2012Q4

REPORT INFORMATION
  Report Type: 
  Country: US (occurrence: US)
  Receive Date: 20121109
  Receipt Date: 20121109
  Transmission Date: 20130627
  Serious: No
  Sender: FDA-Public Use
  Company Number: US-009507513-1211USA004238

PATIENT
  Sex: Male

DRUGS (6)
  1. UNSPECIFIED INGREDIENT [Suspect]
     Dosage: UNK
     Route: 048
     Dates: start: 201208
  2. OMEGA 3 FATTY ACID [Concomitant]
  3. MILK THISTLE [Concomitant]
  4. CYANOCOBALAMIN [Concomitant]
  5. ASCORBIC ACID [Concomitant]
  6. VITAMIN E [Concomitant]

REACTIONS (2)
  - Burning sensation [Unknown]
  - Generalised erythema [Unknown]
